FAERS Safety Report 6594185-9 (Version None)
Quarter: 2010Q1

REPORT INFORMATION
  Report Type: 
  Country: None (occurrence: None)
  Receive Date: 20100222
  Receipt Date: 20100215
  Transmission Date: 20100710
  Serious: Yes (Death, Other)
  Sender: FDA-Public Use
  Company Number: DE-ROCHE-685975

PATIENT

DRUGS (2)
  1. CAPECITABINE [Suspect]
     Dosage: END OF TREATMENT PHASE, LAST DOSE OF PROTOCOL TREATMENT: 07 FEB 2008
     Route: 065
     Dates: end: 20080221
  2. NAVELBINE [Concomitant]

REACTIONS (2)
  - DEATH [None]
  - MALIGNANT NEOPLASM PROGRESSION [None]
